FAERS Safety Report 4761272-7 (Version None)
Quarter: 2005Q3

REPORT INFORMATION
  Report Type: 
  Country: None (occurrence: None)
  Receive Date: 20050906
  Receipt Date: 20050829
  Transmission Date: 20060218
  Serious: Yes (Life-Threatening, Other)
  Sender: FDA-Public Use
  Company Number: GB-JNJFOC-20050806454

PATIENT
  Age: 39 Year
  Sex: Female
  Weight: 44 kg

DRUGS (5)
  1. REMICADE [Suspect]
     Indication: CROHN'S DISEASE
     Route: 042
  2. AZATHIOPRINE [Concomitant]
     Indication: CROHN'S DISEASE
     Route: 048
  3. DIHYDROCODEINE [Concomitant]
     Route: 048
  4. AMITRIPTYLINE HCL [Concomitant]
     Route: 048
  5. FUROSEMIDE [Concomitant]
     Indication: FLUID RETENTION
     Route: 048

REACTIONS (4)
  - PERIORBITAL OEDEMA [None]
  - STRIDOR [None]
  - TYPE IV HYPERSENSITIVITY REACTION [None]
  - URTICARIA [None]
